FAERS Safety Report 8852427 (Version 1)
Quarter: 2012Q4

REPORT INFORMATION
  Report Type: 
  Country: US (occurrence: US)
  Receive Date: 20121022
  Receipt Date: 20121022
  Transmission Date: 20130627
  Serious: Yes (Life-Threatening, Hospitalization, Other)
  Sender: FDA-Public Use
  Company Number: US-ELI_LILLY_AND_COMPANY-US201210005742

PATIENT
  Age: 56 Year
  Sex: Male

DRUGS (2)
  1. EFFIENT [Suspect]
     Indication: STENT PLACEMENT
     Dosage: UNK, unknown
     Dates: start: 20120928
  2. METFORMIN [Concomitant]
     Dosage: UNK, unknown

REACTIONS (11)
  - Thrombotic thrombocytopenic purpura [Unknown]
  - Abdominal discomfort [Unknown]
  - Pain in extremity [Unknown]
  - Splenic embolism [Unknown]
  - Embolism [Unknown]
  - Renal impairment [Unknown]
  - Ejection fraction decreased [Unknown]
  - Ventricular hypokinesia [Unknown]
  - Platelet count decreased [Unknown]
  - Pallor [Unknown]
  - Conjunctival discolouration [Unknown]
